FAERS Safety Report 6000847-4 (Version None)
Quarter: 2008Q4

REPORT INFORMATION
  Report Type: 
  Country: None (occurrence: None)
  Receive Date: 20081215
  Receipt Date: 20080814
  Transmission Date: 20090506
  Serious: No
  Sender: FDA-Public Use
  Company Number: US-AMGEN-KDL301666

PATIENT
  Sex: Female

DRUGS (3)
  1. ENBREL [Suspect]
     Indication: RHEUMATOID ARTHRITIS
     Route: 058
     Dates: start: 20080724
  2. PLAQUENIL [Concomitant]
     Dates: start: 20080725
  3. METHOTREXATE [Concomitant]
     Route: 048
     Dates: start: 20080710

REACTIONS (2)
  - HERPES SIMPLEX [None]
  - OPEN WOUND [None]
